FAERS Safety Report 9907985 (Version 1)
Quarter: 2014Q1

REPORT INFORMATION
  Report Type: Report from Study
  Country: FR (occurrence: FR)
  Receive Date: 20140219
  Receipt Date: 20140219
  Transmission Date: 20141002
  Serious: Yes (Hospitalization)
  Sender: FDA-Public Use
  Company Number: FR-ROCHE-1346417

PATIENT
  Sex: Female

DRUGS (3)
  1. RITUXIMAB [Suspect]
     Indication: RHEUMATOID ARTHRITIS
     Route: 041
     Dates: start: 20070213
  2. CORTANCYL [Concomitant]
     Route: 065
  3. METHOTREXATE [Concomitant]
     Route: 065

REACTIONS (5)
  - Lipoma excision [Recovered/Resolved]
  - Retinal detachment [Recovered/Resolved]
  - Tooth infection [Recovered/Resolved]
  - Abdominal pain [Recovered/Resolved]
  - Ankle fracture [Recovered/Resolved]
